FAERS Safety Report 4915905-2 (Version None)
Quarter: 2006Q1

REPORT INFORMATION
  Report Type: 
  Country: None (occurrence: None)
  Receive Date: 20060217
  Receipt Date: 20060214
  Transmission Date: 20060701
  Serious: Yes (Life-Threatening)
  Sender: FDA-Public Use
  Company Number: DK-AVENTIS-200611348GDDC

PATIENT
  Sex: Male

DRUGS (1)
  1. AMARYL [Suspect]
     Indication: DIABETES MELLITUS NON-INSULIN-DEPENDENT
     Dates: start: 20060208, end: 20060210

REACTIONS (2)
  - EMOTIONAL DISTRESS [None]
  - HYPOGLYCAEMIC COMA [None]
